FAERS Safety Report 18424473 (Version 1)
Quarter: 2020Q4

REPORT INFORMATION
  Report Type: Spontaneous
  Country: TW (occurrence: TW)
  Receive Date: 20201026
  Receipt Date: 20201026
  Transmission Date: 20210114
  Serious: Yes (Other)
  Sender: FDA-Public Use
  Company Number: TW-SUN PHARMACEUTICAL INDUSTRIES LTD-2020RR-265149

PATIENT
  Age: 65 Year
  Sex: Female

DRUGS (1)
  1. ERLOTINIB [Suspect]
     Active Substance: ERLOTINIB
     Indication: DISEASE PROGRESSION
     Dosage: 100 MILLIGRAM, DAILY
     Route: 065

REACTIONS (1)
  - Necrolytic migratory erythema [Recovering/Resolving]
